FAERS Safety Report 21177320 (Version 1)
Quarter: 2022Q3

REPORT INFORMATION
  Report Type: Spontaneous
  Country: US (occurrence: US)
  Receive Date: 20220805
  Receipt Date: 20220805
  Transmission Date: 20221026
  Serious: Yes (Other)
  Sender: FDA-Public Use
  Company Number: US-009507513-2208USA002277

PATIENT
  Sex: Male

DRUGS (2)
  1. JANUVIA [Suspect]
     Active Substance: SITAGLIPTIN PHOSPHATE
     Indication: Diabetes mellitus management
     Dosage: ONCE DAILY
     Route: 048
     Dates: start: 202102
  2. ACTOS [Suspect]
     Active Substance: PIOGLITAZONE HYDROCHLORIDE
     Dosage: 30 MILLIGRAM, ONCE DAILY (QD)

REACTIONS (5)
  - Chronic kidney disease [Not Recovered/Not Resolved]
  - Lung neoplasm [Unknown]
  - Pneumonia fungal [Unknown]
  - Renal impairment [Not Recovered/Not Resolved]
  - Glomerular filtration rate abnormal [Unknown]

NARRATIVE: CASE EVENT DATE: 20210101
